FAERS Safety Report 10217061 (Version 1)
Quarter: 2014Q2

REPORT INFORMATION
  Report Type: Spontaneous
  Country: GB (occurrence: GB)
  Receive Date: 20140604
  Receipt Date: 20140604
  Transmission Date: 20141212
  Serious: Yes (Other)
  Sender: FDA-Public Use
  Company Number: ALCN2014GB003271

PATIENT
  Age: 72 Year
  Sex: Male
  Weight: 84.5 kg

DRUGS (11)
  1. CIPROFLOXACIN [Suspect]
     Dosage: UNK
     Route: 047
     Dates: start: 20140508, end: 20140515
  2. AMIODARONE [Concomitant]
     Dosage: UNK
     Dates: start: 20140320, end: 20140514
  3. ASPIRIN [Concomitant]
     Dosage: UNK
     Dates: start: 20140224
  4. ATORVASTATIN [Concomitant]
     Dosage: UNK
     Dates: start: 20140422
  5. BISOPROLOL [Concomitant]
     Dosage: UNK
     Dates: start: 20140224
  6. LOSARTAN [Concomitant]
     Dosage: UNK
     Dates: start: 20140123, end: 20140514
  7. PREDNISOLONE [Concomitant]
     Dosage: UNK
     Dates: start: 20140328, end: 20140514
  8. TIOTROPIUM [Concomitant]
     Dosage: UNK
     Dates: start: 20140430
  9. VITAMIN B [Concomitant]
     Dosage: UNK
     Dates: start: 20140224, end: 20140514
  10. SALBUTAMOL [Concomitant]
     Dosage: UNK
     Dates: start: 20140123
  11. THIAMINE [Concomitant]
     Dosage: UNK
     Dates: start: 20140224

REACTIONS (1)
  - Photosensitivity reaction [Unknown]
